FAERS Safety Report 9228824 (Version 1)
Quarter: 2013Q2

REPORT INFORMATION
  Report Type: Spontaneous
  Country: TW (occurrence: TW)
  Receive Date: 20130412
  Receipt Date: 20130412
  Transmission Date: 20140414
  Serious: Yes (Death, Other)
  Sender: FDA-Public Use
  Company Number: TW-ROCHE-1213928

PATIENT
  Age: 47 Year
  Sex: Female

DRUGS (1)
  1. ACTILYSE [Suspect]
     Indication: ISCHAEMIC STROKE
     Route: 042

REACTIONS (4)
  - Subarachnoid haemorrhage [Fatal]
  - Decerebration [Fatal]
  - Haemorrhage intracranial [Unknown]
  - Coma [Unknown]
